FAERS Safety Report 17170973 (Version 3)
Quarter: 2020Q3

REPORT INFORMATION
  Report Type: Spontaneous
  Country: FR (occurrence: FR)
  Receive Date: 20191218
  Receipt Date: 20200902
  Transmission Date: 20201102
  Serious: Yes (Death, Other)
  Sender: FDA-Public Use
  Company Number: FR-AMGEN-FRASP2019208301

PATIENT

DRUGS (1)
  1. NPLATE [Suspect]
     Active Substance: ROMIPLOSTIM
     Indication: EXPOSURE DURING PREGNANCY
     Dosage: UNK
     Route: 064

REACTIONS (3)
  - Death [Fatal]
  - Trisomy 8 [Unknown]
  - Foetal exposure during pregnancy [Unknown]
